FAERS Safety Report 13680191 (Version 1)
Quarter: 2017Q2

REPORT INFORMATION
  Report Type: Spontaneous
  Country: US (occurrence: US)
  Receive Date: 20170622
  Receipt Date: 20170622
  Transmission Date: 20170830
  Serious: No
  Sender: FDA-Public Use
  Company Number: US-ACTELION-A-US2017-155598

PATIENT
  Age: 78 Year
  Sex: Female

DRUGS (1)
  1. OPSUMIT [Suspect]
     Active Substance: MACITENTAN
     Indication: PULMONARY ARTERIAL HYPERTENSION
     Dosage: 10 MG, QD
     Route: 048
     Dates: start: 20170428

REACTIONS (3)
  - Muscle spasms [Recovering/Resolving]
  - Pruritus [Recovering/Resolving]
  - Peripheral swelling [Recovering/Resolving]

NARRATIVE: CASE EVENT DATE: 20170601
